FAERS Safety Report 6359013-5 (Version None)
Quarter: 2009Q3

REPORT INFORMATION
  Report Type: 
  Country: None (occurrence: None)
  Receive Date: 20090917
  Receipt Date: 20090910
  Transmission Date: 20100115
  Serious: Yes (Other)
  Sender: FDA-Public Use
  Company Number: US-JNJCH-2009024525

PATIENT
  Age: 44 Year
  Sex: Male
  Weight: 77.1 kg

DRUGS (1)
  1. ROGAINE [Suspect]
     Indication: ALOPECIA
     Dosage: TEXT:A FEW DROPS TWICE DAILY
     Route: 061

REACTIONS (2)
  - APPLICATION SITE DISCHARGE [None]
  - APPLICATION SITE EROSION [None]
